FAERS Safety Report 19673445 (Version 1)
Quarter: 2021Q3

REPORT INFORMATION
  Report Type: Spontaneous
  Country: JP (occurrence: JP)
  Receive Date: 20210809
  Receipt Date: 20210809
  Transmission Date: 20211014
  Serious: Yes (Other)
  Sender: FDA-Public Use
  Company Number: JP-LUPIN PHARMACEUTICALS INC.-2021-14017

PATIENT
  Age: 42 Year
  Sex: Male

DRUGS (4)
  1. ASPIRIN. [Concomitant]
     Active Substance: ASPIRIN
     Indication: DRUG PROVOCATION TEST
     Dosage: 60 MILLIGRAM
     Route: 048
  2. LOXOPROFEN SODIUM [Concomitant]
     Active Substance: LOXOPROFEN SODIUM
     Indication: PRODUCT USED FOR UNKNOWN INDICATION
     Dosage: UNK
     Route: 048
  3. CELECOXIB. [Suspect]
     Active Substance: CELECOXIB
     Indication: DRUG PROVOCATION TEST
     Dosage: 25 MILLIGRAM, AT 1.5H
     Route: 048
  4. CELECOXIB. [Suspect]
     Active Substance: CELECOXIB
     Dosage: 50 MILLIGRAM, AT 4H
     Route: 048

REACTIONS (3)
  - Nasal disorder [Unknown]
  - Respiratory symptom [Unknown]
  - Forced expiratory volume decreased [Unknown]
